FAERS Safety Report 25515502 (Version 3)
Quarter: 2025Q3

REPORT INFORMATION
  Report Type: Spontaneous
  Country: US (occurrence: US)
  Receive Date: 20250704
  Receipt Date: 20250714
  Transmission Date: 20251020
  Serious: Yes (Life-Threatening, Hospitalization)
  Sender: TEVA
  Company Number: US-TEVA-VS-3347899

PATIENT
  Age: 39 Year
  Sex: Female

DRUGS (2)
  1. DEXMEDETOMIDINE [Suspect]
     Active Substance: DEXMEDETOMIDINE
     Indication: Agitation
     Route: 065
  2. HALOPERIDOL [Concomitant]
     Active Substance: HALOPERIDOL
     Indication: Agitation
     Route: 065

REACTIONS (3)
  - Torsade de pointes [Recovered/Resolved]
  - Bradycardia [Recovered/Resolved]
  - Pulse absent [Recovered/Resolved]
